FAERS Safety Report 7480905-8 (Version None)
Quarter: 2011Q2

REPORT INFORMATION
  Report Type: 
  Country: None (occurrence: None)
  Receive Date: 20110512
  Receipt Date: 20110512
  Transmission Date: 20111010
  Serious: Yes (Other)
  Sender: FDA-Public Use
  Company Number: None

PATIENT
  Sex: Male
  Weight: 90.7194 kg

DRUGS (2)
  1. KLONOPIN [Concomitant]
  2. GEODON [Suspect]
     Indication: SCHIZOPHRENIA
     Dosage: 80MG X 2/DAY  2X A DAY ORAL
     Route: 048
     Dates: start: 20010101, end: 20110430

REACTIONS (8)
  - HYPERPROLACTINAEMIA [None]
  - PRURITUS [None]
  - INSOMNIA [None]
  - RASH [None]
  - INGROWN HAIR [None]
  - DRUG EFFECT DECREASED [None]
  - WITHDRAWAL SYNDROME [None]
  - RESTLESSNESS [None]
